FAERS Safety Report 9469862 (Version 1)
Quarter: 2013Q3

REPORT INFORMATION
  Report Type: Spontaneous
  Country: CH (occurrence: CH)
  Receive Date: 20130822
  Receipt Date: 20130822
  Transmission Date: 20140515
  Serious: Yes (Hospitalization)
  Sender: FDA-Public Use
  Company Number: CH-JNJFOC-20130808403

PATIENT
  Age: 21 Year
  Sex: Male

DRUGS (7)
  1. RISPERDAL [Suspect]
     Indication: AUTISM
     Route: 048
     Dates: start: 20130302
  2. RISPERDAL [Suspect]
     Indication: AUTISM
     Route: 048
     Dates: start: 20130516
  3. RISPERDAL [Suspect]
     Indication: AUTISM
     Route: 048
     Dates: start: 20130601, end: 20130614
  4. SOLIAN [Suspect]
     Indication: AUTISM
     Route: 048
     Dates: start: 20130610, end: 20130614
  5. SOLIAN [Suspect]
     Indication: AUTISM
     Route: 048
     Dates: start: 20130525
  6. CALCITRIOL [Concomitant]
     Route: 048
  7. CALCIMAGON D3 [Concomitant]
     Route: 048

REACTIONS (11)
  - Neuroleptic malignant syndrome [Recovering/Resolving]
  - Hypertonia [Recovering/Resolving]
  - Tachycardia [Recovered/Resolved]
  - Hypertension [Recovered/Resolved]
  - Blood creatine phosphokinase increased [Recovering/Resolving]
  - White blood cell count increased [Recovering/Resolving]
  - Hyperpyrexia [Recovered/Resolved]
  - Tremor [Recovered/Resolved]
  - Mutism [Recovered/Resolved]
  - Hyperhidrosis [Recovered/Resolved]
  - Abnormal behaviour [Unknown]
